FAERS Safety Report 15584859 (Version 1)
Quarter: 2018Q4

REPORT INFORMATION
  Report Type: Report from Study
  Country: AU (occurrence: AU)
  Receive Date: 20181105
  Receipt Date: 20181105
  Transmission Date: 20190205
  Serious: Yes (Death, Hospitalization)
  Sender: FDA-Public Use
  Company Number: AU-TEVA-2018-AU-972048

PATIENT

DRUGS (2)
  1. INDAPAMIDE. [Interacting]
     Active Substance: INDAPAMIDE
     Route: 065
  2. FOSINOPRIL [Suspect]
     Active Substance: FOSINOPRIL
     Route: 065

REACTIONS (2)
  - Drug interaction [Fatal]
  - Acute kidney injury [Fatal]
